FAERS Safety Report 5125287-1 (Version None)
Quarter: 2006Q4

REPORT INFORMATION
  Report Type: 
  Country: None (occurrence: None)
  Receive Date: 20061006
  Receipt Date: 20060925
  Transmission Date: 20070319
  Serious: Yes (Other)
  Sender: FDA-Public Use
  Company Number: 2006117008

PATIENT
  Sex: Female

DRUGS (2)
  1. BEXTRA [Suspect]
     Dates: start: 20040301, end: 20040901
  2. VIOXX [Suspect]
     Dates: start: 20030901, end: 20040201

REACTIONS (3)
  - CEREBROVASCULAR ACCIDENT [None]
  - MYOCARDIAL INFARCTION [None]
  - TRANSIENT ISCHAEMIC ATTACK [None]
